FAERS Safety Report 4695042-5 (Version None)
Quarter: 2005Q2

REPORT INFORMATION
  Report Type: 
  Country: None (occurrence: None)
  Receive Date: 20050617
  Receipt Date: 20050606
  Transmission Date: 20051028
  Serious: Yes (Other)
  Sender: FDA-Public Use
  Company Number: 2005086213

PATIENT
  Age: 49 Year
  Sex: Female

DRUGS (3)
  1. SOMAVERT [Suspect]
     Indication: ACROMEGALY
     Dosage: SEE IMAGE
     Dates: start: 20050201, end: 20050414
  2. SOMAVERT [Suspect]
     Indication: ACROMEGALY
     Dosage: SEE IMAGE
     Dates: start: 20050415, end: 20050501
  3. URSOLVAN-200 (URSODEOXYCHOLIC ACID) [Concomitant]

REACTIONS (2)
  - HEPATOCELLULAR DAMAGE [None]
  - INSULIN-LIKE GROWTH FACTOR INCREASED [None]
